FAERS Safety Report 7656419-9 (Version None)
Quarter: 2011Q3

REPORT INFORMATION
  Report Type: 
  Country: None (occurrence: None)
  Receive Date: 20110804
  Receipt Date: 20110729
  Transmission Date: 20111222
  Serious: Yes (Other)
  Sender: FDA-Public Use
  Company Number: GB-GLAXOSMITHKLINE-B0735923A

PATIENT
  Age: 40 Year
  Sex: Male

DRUGS (5)
  1. ALBUTEROL SULFATE AUTOHALER [Suspect]
     Indication: ASTHMA
  2. SERETIDE [Suspect]
  3. SINGULAIR [Concomitant]
  4. BECONASE [Suspect]
     Indication: RHINITIS
  5. SERETIDE [Suspect]
     Indication: ASTHMA

REACTIONS (2)
  - ASTHMA [None]
  - DRUG INEFFECTIVE [None]
